FAERS Safety Report 8645501 (Version 2)
Quarter: 2013Q4

REPORT INFORMATION
  Report Type: Report from Study
  Country: BE (occurrence: BE)
  Receive Date: 20120702
  Receipt Date: 20131113
  Transmission Date: 20140711
  Serious: Yes (Other)
  Sender: FDA-Public Use
  Company Number: BE-EISAI INC-E7389-02622-CLI-BE

PATIENT
  Age: 67 Year
  Sex: Male
  Weight: 84 kg

DRUGS (4)
  1. E7389 (BOLD) [Suspect]
     Indication: SARCOMA
     Route: 041
     Dates: start: 20120126
  2. DACARBAZINE [Suspect]
     Indication: SARCOMA
     Route: 041
     Dates: start: 20120126
  3. DAFALGAN [Concomitant]
     Route: 065
     Dates: start: 20120315
  4. OMPEPRAZOL [Concomitant]
     Route: 065
     Dates: start: 20110207

REACTIONS (1)
  - Hypersensitivity [Recovered/Resolved]
